FAERS Safety Report 24085586 (Version 1)
Quarter: 2024Q3

REPORT INFORMATION
  Report Type: Spontaneous
  Country: US (occurrence: US)
  Receive Date: 20240712
  Receipt Date: 20240712
  Transmission Date: 20241017
  Serious: Yes (Hospitalization, Other)
  Sender: AMNEAL
  Company Number: US-AMNEAL PHARMACEUTICALS-2024-AMRX-02487

PATIENT
  Age: 68 Year
  Sex: Male
  Weight: 72.562 kg

DRUGS (1)
  1. RYTARY [Suspect]
     Active Substance: CARBIDOPA\LEVODOPA
     Indication: Parkinson^s disease
     Dosage: 1 CAPSULES, (36.25/145 MG/MG) 6 /DAY
     Route: 048
     Dates: start: 20240125

REACTIONS (4)
  - Dystonia [Not Recovered/Not Resolved]
  - Mental status changes [Recovered/Resolved]
  - Speech disorder [Not Recovered/Not Resolved]
  - Loss of consciousness [Unknown]

NARRATIVE: CASE EVENT DATE: 20240301
